FAERS Safety Report 7354532-7 (Version None)
Quarter: 2011Q1

REPORT INFORMATION
  Report Type: 
  Country: None (occurrence: None)
  Receive Date: 20110316
  Receipt Date: 20100928
  Transmission Date: 20110831
  Serious: Yes (Hospitalization)
  Sender: FDA-Public Use
  Company Number: US-BAYER-201034868NA

PATIENT
  Sex: Female
  Weight: 72.562 kg

DRUGS (7)
  1. TAZORAC [Concomitant]
  2. YASMIN [Suspect]
     Indication: POLYCYSTIC OVARIES
  3. METFORMIN HCL [Concomitant]
     Dosage: 750 MG, BID
  4. UNCODEABLE ^UNCLASSIFIABLE^ [Concomitant]
     Dosage: 1 DF, TID
  5. MULTI-VITAMIN [Concomitant]
  6. YASMIN [Suspect]
     Indication: ACNE
     Dosage: 1 DF, QD
     Route: 048
     Dates: start: 20050401, end: 20080101
  7. ZYRTEC [Concomitant]
     Dosage: 1 DF, PRN

REACTIONS (2)
  - HYPERCOAGULATION [None]
  - DEEP VEIN THROMBOSIS [None]
